FAERS Safety Report 24731831 (Version 1)
Quarter: 2024Q4

REPORT INFORMATION
  Report Type: Spontaneous
  Country: US (occurrence: None)
  Receive Date: 20241213
  Receipt Date: 20241213
  Transmission Date: 20250114
  Serious: Yes (Hospitalization)
  Sender: Public
  Company Number: None

PATIENT
  Sex: Female

DRUGS (11)
  1. LENALIDOMIDE [Suspect]
     Active Substance: LENALIDOMIDE
     Indication: Plasma cell myeloma in remission
     Dosage: FREQUENCY : DAILY;?
     Route: 048
     Dates: start: 20240604
  2. ALBUTEROL AER HFA [Concomitant]
  3. ALLEGRA ALRG TAB 180MG [Concomitant]
  4. ASPIRIN CHW 81MG [Concomitant]
  5. BETAMETH DIP CRE 0.05% [Concomitant]
  6. DUPIXENT [Concomitant]
     Active Substance: DUPILUMAB
  7. FLONASE ALGY SPR 50MCG [Concomitant]
  8. LENALIDOMIDE [Concomitant]
     Active Substance: LENALIDOMIDE
  9. MULTIPLE VIT TAB [Concomitant]
  10. ONDANSETRON [Concomitant]
     Active Substance: ONDANSETRON
  11. SUMATRIPTAN TAB 50MG [Concomitant]

REACTIONS (2)
  - Hospitalisation [None]
  - Intentional dose omission [None]
